FAERS Safety Report 18471560 (Version 3)
Quarter: 2021Q1

REPORT INFORMATION
  Report Type: Report from Study
  Country: GB (occurrence: GB)
  Receive Date: 20201106
  Receipt Date: 20210209
  Transmission Date: 20210419
  Serious: Yes (Other)
  Sender: FDA-Public Use
  Company Number: GB-BAXTER-2020BAX021926

PATIENT
  Age: 41 Year
  Sex: Male

DRUGS (5)
  1. MIDAZOLAM 1 MG/ML SOLUTION FOR INJECTION/INFUSION [Suspect]
     Active Substance: MIDAZOLAM
     Dosage: 1 MILLIGRAM
     Route: 042
     Dates: start: 20200909, end: 20200909
  2. MIDAZOLAM. [Suspect]
     Active Substance: MIDAZOLAM
     Dosage: 2.5 MILLIGRAM, UNK
     Route: 048
     Dates: start: 20200907, end: 20200907
  3. MIDAZOLAM 1 MG/ML SOLUTION FOR INJECTION/INFUSION [Suspect]
     Active Substance: MIDAZOLAM
     Indication: DRUG LEVEL
     Dosage: 1 MILLIGRAM, UNK
     Route: 042
     Dates: start: 20200827, end: 20200827
  4. MIDAZOLAM. [Suspect]
     Active Substance: MIDAZOLAM
     Indication: DRUG LEVEL
     Dosage: 2.5 MILLIGRAM, UNK
     Route: 048
     Dates: start: 20200825, end: 20200825
  5. SATIVEX [Suspect]
     Active Substance: NABIXIMOLS
     Indication: DRUG LEVEL
     Dosage: 27/25 MG/ML, 6 ACTUATIONS TWICE DAILY
     Route: 002
     Dates: start: 20200828, end: 20200909

REACTIONS (6)
  - Depressed level of consciousness [Recovered/Resolved]
  - Arthralgia [Unknown]
  - Dizziness [Recovered/Resolved]
  - Dizziness [Recovered/Resolved]
  - Memory impairment [Recovered/Resolved]
  - Limb discomfort [Recovered/Resolved]

NARRATIVE: CASE EVENT DATE: 20200825
